FAERS Safety Report 6608695-9 (Version None)
Quarter: 2010Q1

REPORT INFORMATION
  Report Type: 
  Country: None (occurrence: None)
  Receive Date: 20100224
  Receipt Date: 20100224
  Transmission Date: 20100710
  Serious: No
  Sender: FDA-Public Use
  Company Number: None

PATIENT
  Age: 42 Year
  Sex: Male
  Weight: 73.4827 kg

DRUGS (8)
  1. LOXAPINE [Suspect]
     Dosage: 20MG PO
     Route: 048
     Dates: start: 20090722, end: 20090729
  2. LEVOTHYROXINE [Concomitant]
  3. VITAMIN AND MINERAL PRENATAL SUPPLEMENT W/ FOLIC ACID CAP [Concomitant]
  4. AMANTADINE HCL [Concomitant]
  5. SEROQUEL [Concomitant]
  6. RANITIDINE [Concomitant]
  7. CLONAZEPAM [Concomitant]
  8. LAMICTAL [Concomitant]

REACTIONS (1)
  - OEDEMA PERIPHERAL [None]
